FAERS Safety Report 17878988 (Version 2)
Quarter: 2020Q2

REPORT INFORMATION
  Report Type: Spontaneous
  Country: AT (occurrence: AT)
  Receive Date: 20200610
  Receipt Date: 20200630
  Transmission Date: 20200714
  Serious: Yes (Hospitalization)
  Sender: FDA-Public Use
  Company Number: AT-B.I. PHARMACEUTICALS,INC./RIDGEFIELD-2020-BI-027987

PATIENT
  Age: 33 Year
  Sex: Male
  Weight: 102 kg

DRUGS (2)
  1. SYNJARDY [Suspect]
     Active Substance: EMPAGLIFLOZIN\METFORMIN HYDROCHLORIDE
     Indication: TYPE 2 DIABETES MELLITUS
     Dosage: FORM STRENGTH: 12.5/850
     Route: 048
  2. METFORMIN [Concomitant]
     Active Substance: METFORMIN HYDROCHLORIDE
     Indication: TYPE 1 DIABETES MELLITUS
     Route: 065
     Dates: end: 20200601

REACTIONS (5)
  - Euglycaemic diabetic ketoacidosis [Recovered/Resolved]
  - Vomiting [Unknown]
  - Nausea [Unknown]
  - Weight decreased [Recovered/Resolved]
  - Dehydration [Recovered/Resolved]
